FAERS Safety Report 15453378 (Version 1)
Quarter: 2018Q4

REPORT INFORMATION
  Report Type: Spontaneous
  Country: IE (occurrence: IE)
  Receive Date: 20181001
  Receipt Date: 20181001
  Transmission Date: 20190204
  Serious: Yes (Other)
  Sender: FDA-Public Use
  Company Number: IE-ABBVIE-18P-229-2499980-00

PATIENT
  Age: 36 Year
  Sex: Female

DRUGS (2)
  1. USTEKINUMAB [Suspect]
     Active Substance: USTEKINUMAB
     Indication: PSORIASIS
     Route: 065
     Dates: start: 2013, end: 2013
  2. ADALIMUMAB [Suspect]
     Active Substance: ADALIMUMAB
     Indication: PSORIASIS
     Route: 058
     Dates: start: 2013, end: 2013

REACTIONS (4)
  - Hyperkeratosis [Recovered/Resolved]
  - Peritoneal tuberculosis [Recovered/Resolved]
  - Nephritis [Unknown]
  - Eosinophilia [Unknown]

NARRATIVE: CASE EVENT DATE: 2013
